FAERS Safety Report 10235003 (Version 1)
Quarter: 2014Q2

REPORT INFORMATION
  Report Type: Spontaneous
  Country: US (occurrence: None)
  Receive Date: 20140611
  Receipt Date: 20140611
  Transmission Date: 20141212
  Serious: Yes (Death, Hospitalization)
  Sender: FDA-Public Use
  Company Number: US-2014-0874

PATIENT
  Sex: Female

DRUGS (4)
  1. VINORELBINE INN [Suspect]
     Indication: BREAST CANCER STAGE IV
     Dosage: 27.5 , MG/M2, DAY 8 AND DAY 15 OVER 6-10 MIN, CYCLICAL (1/21), INTRAVENOUS
     Route: 042
  2. DOCETAXEL (DOCETAXEL) [Suspect]
     Indication: BREAST CANCER STAGE IV
     Dosage: 60 MG/M2, DAY 1 OVER 1 H, CYCLICAL (1/21), INTRAVENOUS
     Route: 042
  3. FILGRASTIM (FILGRASTIM) [Concomitant]
  4. DEXAMETHASONE [Concomitant]

REACTIONS (2)
  - Cardiopulmonary failure [None]
  - Pneumonia [None]
